FAERS Safety Report 7865102-6 (Version None)
Quarter: 2011Q4

REPORT INFORMATION
  Report Type: 
  Country: None (occurrence: None)
  Receive Date: 20111028
  Receipt Date: 20101014
  Transmission Date: 20120403
  Serious: No
  Sender: FDA-Public Use
  Company Number: US-GLAXOSMITHKLINE-A0886717A

PATIENT
  Age: 90 Year
  Sex: Female

DRUGS (12)
  1. HYDROCORTISONE [Concomitant]
  2. JANUVIA [Concomitant]
  3. ASPIRIN [Concomitant]
  4. CALCIUM CARBONATE [Concomitant]
  5. COZAAR [Concomitant]
  6. OMEPRAZOLE [Concomitant]
  7. GABAPENTIN [Concomitant]
  8. FLUCORT [Concomitant]
  9. ADVAIR DISKUS 100/50 [Suspect]
     Indication: ASTHMA
     Dosage: 1PUFF PER DAY
     Route: 055
     Dates: start: 20051001
  10. VITAMIN D [Concomitant]
  11. OXYBUTYNIN [Concomitant]
  12. SERTRALINE HYDROCHLORIDE [Concomitant]

REACTIONS (3)
  - BALANCE DISORDER [None]
  - FALL [None]
  - COUGH [None]
